FAERS Safety Report 5677758-7 (Version None)
Quarter: 2008Q1

REPORT INFORMATION
  Report Type: 
  Country: None (occurrence: None)
  Receive Date: 20080324
  Receipt Date: 20080318
  Transmission Date: 20080703
  Serious: Yes (Hospitalization)
  Sender: FDA-Public Use
  Company Number: US-GILEAD-2007-0014569

PATIENT
  Sex: Male

DRUGS (6)
  1. LETAIRIS [Suspect]
  2. COUMADIN [Concomitant]
  3. REVATIO [Concomitant]
  4. SYMBICORT [Concomitant]
  5. ALBUTEROL [Concomitant]
  6. OXYGEN [Concomitant]

REACTIONS (1)
  - PNEUMONIA [None]
